FAERS Safety Report 7357302-9 (Version None)
Quarter: 2011Q1

REPORT INFORMATION
  Report Type: 
  Country: None (occurrence: None)
  Receive Date: 20110317
  Receipt Date: 20110220
  Transmission Date: 20110831
  Serious: No
  Sender: FDA-Public Use
  Company Number: US-B.I. PHARMACEUTICALS,INC./RIDGEFIELD-2011-BP-06415BP

PATIENT
  Age: 70 Year
  Sex: Male

DRUGS (1)
  1. ZANTAC 150 [Suspect]
     Indication: GASTROOESOPHAGEAL REFLUX DISEASE
     Dosage: 150 MG
     Route: 048
     Dates: start: 20110101

REACTIONS (1)
  - DRY MOUTH [None]
